FAERS Safety Report 5075670-8 (Version None)
Quarter: 2006Q3

REPORT INFORMATION
  Report Type: 
  Country: None (occurrence: None)
  Receive Date: 20060809
  Receipt Date: 20060712
  Transmission Date: 20061208
  Serious: Yes (Death, Hospitalization)
  Sender: FDA-Public Use
  Company Number: BG-AVENTIS-200617227GDDC

PATIENT
  Age: 63 Year
  Sex: Female
  Weight: 84 kg

DRUGS (6)
  1. TAXOTERE [Suspect]
     Indication: BREAST CANCER
     Route: 042
     Dates: start: 20060330, end: 20060330
  2. TAXOTERE [Suspect]
     Route: 042
     Dates: start: 20060523, end: 20060523
  3. DOXORUBICIN HYDROCHLORIDE [Suspect]
     Indication: BREAST CANCER
     Route: 042
     Dates: start: 20060330, end: 20060330
  4. DOXORUBICIN HYDROCHLORIDE [Suspect]
     Route: 042
     Dates: start: 20060523, end: 20060523
  5. NEUPOGEN [Concomitant]
     Indication: LEUKOPENIA
     Dosage: DOSE: 30,000
     Route: 058
     Dates: start: 20060601
  6. TIAMIN [Concomitant]
     Indication: NEUTROPENIA
     Route: 030
     Dates: start: 20060601

REACTIONS (3)
  - CARDIAC FAILURE [None]
  - CARDIOMYOPATHY [None]
  - PULMONARY EMBOLISM [None]
